FAERS Safety Report 14169145 (Version 1)
Quarter: 2017Q4

REPORT INFORMATION
  Report Type: Spontaneous
  Country: SE (occurrence: SE)
  Receive Date: 20171108
  Receipt Date: 20171108
  Transmission Date: 20180321
  Serious: Yes (Death, Other)
  Sender: FDA-Public Use
  Company Number: SE-LUPIN PHARMACEUTICALS INC.-2017-06427

PATIENT
  Age: 42 Year
  Sex: Male

DRUGS (6)
  1. MORPHINE [Suspect]
     Active Substance: MORPHINE
     Indication: PRODUCT USED FOR UNKNOWN INDICATION
     Dosage: UNK
     Route: 065
  2. DIAZEPAM. [Suspect]
     Active Substance: DIAZEPAM
     Indication: SEDATIVE THERAPY
     Dosage: UNK
     Route: 065
  3. ETHINAMATE [Suspect]
     Active Substance: ETHINAMATE
     Indication: SEDATIVE THERAPY
     Dosage: UNK
     Route: 065
  4. PETHIDINE [Suspect]
     Active Substance: MEPERIDINE
     Indication: PAIN
     Dosage: UNK
     Route: 065
  5. CODEINE [Suspect]
     Active Substance: CODEINE
     Indication: PAIN
     Dosage: UNK
     Route: 065
  6. METHAQUALONE [Suspect]
     Active Substance: METHAQUALONE
     Indication: SEDATIVE THERAPY
     Dosage: UNK
     Route: 065

REACTIONS (3)
  - Prescribed overdose [Fatal]
  - Arrhythmia [Fatal]
  - Drug dependence [Fatal]

NARRATIVE: CASE EVENT DATE: 19770816
